FAERS Safety Report 15317533 (Version 1)
Quarter: 2018Q3

REPORT INFORMATION
  Report Type: Report from Study
  Country: BE (occurrence: BE)
  Receive Date: 20180824
  Receipt Date: 20180824
  Transmission Date: 20181010
  Serious: Yes (Death, Hospitalization, Other)
  Sender: FDA-Public Use
  Company Number: BE-B.I. PHARMACEUTICALS,INC./RIDGEFIELD-2018-BI-033910

PATIENT
  Age: 63 Year
  Sex: Male
  Weight: 62.4 kg

DRUGS (10)
  1. FRESUBIN [Concomitant]
     Active Substance: AMINO ACIDS\DEXTROSE\ELECTROLYTES NOS\SOYBEAN OIL\VITAMINS
     Dosage: ENTERAL FEEDING GI CONTROL
     Route: 065
     Dates: start: 20180704, end: 20180710
  2. ISOSOURCE STANDARD [Concomitant]
     Indication: DYSPHAGIA
     Route: 065
     Dates: end: 20180703
  3. NEXIAM [Concomitant]
     Active Substance: ESOMEPRAZOLE
     Indication: NAUSEA
     Route: 048
     Dates: start: 20180731
  4. MIRTAZAPINE. [Concomitant]
     Active Substance: MIRTAZAPINE
     Indication: DEPRESSION
     Route: 048
     Dates: start: 20180727
  5. LITICAN [Concomitant]
     Active Substance: ALIZAPRIDE HYDROCHLORIDE
     Indication: VOMITING
  6. MEDROL [Concomitant]
     Active Substance: METHYLPREDNISOLONE
     Indication: DUODENITIS
     Route: 042
     Dates: start: 20180731
  7. FRESUBIN [Concomitant]
     Active Substance: AMINO ACIDS\DEXTROSE\ELECTROLYTES NOS\SOYBEAN OIL\VITAMINS
     Indication: DYSPHAGIA
     Dosage: ENTERAL FEEDING 2KCAL
     Route: 065
     Dates: start: 201707, end: 20180702
  8. AFATINIB [Suspect]
     Active Substance: AFATINIB
     Indication: SQUAMOUS CELL CARCINOMA OF HEAD AND NECK
     Route: 048
     Dates: start: 20180614, end: 20180703
  9. AFATINIB [Suspect]
     Active Substance: AFATINIB
     Route: 048
     Dates: start: 20180716
  10. LITICAN [Concomitant]
     Active Substance: ALIZAPRIDE HYDROCHLORIDE
     Indication: NAUSEA
     Dosage: DAILY DOSE: 50MG AS NEEDED (PRN)
     Route: 048
     Dates: start: 201710, end: 20180628

REACTIONS (4)
  - Death [Fatal]
  - Dehydration [Not Recovered/Not Resolved]
  - Diarrhoea [Recovered/Resolved]
  - Vomiting [Not Recovered/Not Resolved]

NARRATIVE: CASE EVENT DATE: 20180628
